FAERS Safety Report 4933735-2 (Version None)
Quarter: 2006Q1

REPORT INFORMATION
  Report Type: 
  Country: None (occurrence: None)
  Receive Date: 20060306
  Receipt Date: 20041228
  Transmission Date: 20060701
  Serious: Yes (Hospitalization)
  Sender: FDA-Public Use
  Company Number: US-MERCK-0412USA03195

PATIENT
  Age: 75 Year
  Sex: Male
  Weight: 76 kg

DRUGS (3)
  1. VIOXX [Suspect]
     Indication: ARTHRITIS
     Route: 048
     Dates: start: 20030110, end: 20040922
  2. VIOXX [Suspect]
     Route: 048
     Dates: start: 20040101, end: 20040922
  3. REMINYL [Suspect]
     Route: 048

REACTIONS (13)
  - ATRIAL FIBRILLATION [None]
  - ATRIAL THROMBOSIS [None]
  - CARDIAC FAILURE CONGESTIVE [None]
  - CEREBROVASCULAR ACCIDENT [None]
  - COUGH [None]
  - DECUBITUS ULCER [None]
  - DEPRESSION [None]
  - DYSPEPSIA [None]
  - EYE IRRITATION [None]
  - FALL [None]
  - NAUSEA [None]
  - PNEUMONIA [None]
  - WEIGHT DECREASED [None]
